FAERS Safety Report 5320896-9 (Version None)
Quarter: 2007Q2

REPORT INFORMATION
  Report Type: 
  Country: None (occurrence: None)
  Receive Date: 20070504
  Receipt Date: 20070420
  Transmission Date: 20071010
  Serious: Yes (Hospitalization, Other)
  Sender: FDA-Public Use
  Company Number: T200601395

PATIENT
  Age: 31 Year
  Sex: Female
  Weight: 55 kg

DRUGS (3)
  1. HEXABRIX [Suspect]
     Indication: ARTHROGRAM
     Dosage: 20 ML SINGLE INTRA-ARTICULAR
     Route: 014
     Dates: start: 20061109, end: 20061109
  2. DESLORATADINE [Concomitant]
  3. CELESTONE [Concomitant]

REACTIONS (7)
  - BRADYCARDIA [None]
  - CYANOSIS [None]
  - DYSPNOEA [None]
  - ERYTHEMA [None]
  - HYPOTENSION [None]
  - PAIN [None]
  - PRURITUS [None]
